FAERS Safety Report 7327048-1 (Version None)
Quarter: 2011Q1

REPORT INFORMATION
  Report Type: 
  Country: None (occurrence: None)
  Receive Date: 20110302
  Receipt Date: 20110301
  Transmission Date: 20110831
  Serious: Yes (Death, Other)
  Sender: FDA-Public Use
  Company Number: PT-ABBOTT-11P-130-0700934-00

PATIENT
  Sex: Female
  Weight: 60 kg

DRUGS (7)
  1. PREDNISOLONE [Concomitant]
     Indication: RHEUMATOID ARTHRITIS
     Route: 048
  2. RANITIDINE [Concomitant]
     Indication: PROPHYLAXIS
     Route: 048
  3. RANITIDINE [Concomitant]
     Indication: GASTRIC DISORDER
  4. ROSUVASTATIN [Concomitant]
     Indication: DYSLIPIDAEMIA
  5. HUMIRA [Suspect]
     Indication: RHEUMATOID ARTHRITIS
     Route: 058
     Dates: start: 20080101, end: 20110118
  6. NIMESULIDE [Concomitant]
     Indication: RHEUMATOID ARTHRITIS
     Route: 048
  7. MEXAZOLAM [Concomitant]
     Indication: ANXIETY
     Route: 048

REACTIONS (3)
  - DEATH [None]
  - CELLULITIS [None]
  - HERPES ZOSTER [None]
